FAERS Safety Report 7230959-9 (Version None)
Quarter: 2011Q1

REPORT INFORMATION
  Report Type: 
  Country: None (occurrence: None)
  Receive Date: 20110118
  Receipt Date: 20110111
  Transmission Date: 20110831
  Serious: Yes (Other)
  Sender: FDA-Public Use
  Company Number: CO-ROCHE-748347

PATIENT
  Sex: Male

DRUGS (1)
  1. MIRCERA [Suspect]
     Dosage: FREQUENCY: QMONTH
     Route: 058
     Dates: start: 20100922

REACTIONS (1)
  - ANAEMIA [None]
